FAERS Safety Report 21851554 (Version 1)
Quarter: 2023Q1

REPORT INFORMATION
  Report Type: Spontaneous
  Country: CN (occurrence: CN)
  Receive Date: 20230112
  Receipt Date: 20230112
  Transmission Date: 20230417
  Serious: Yes (Other)
  Sender: FDA-Public Use
  Company Number: CN-OCTA-ALB00123CN

PATIENT
  Age: 73 Year
  Sex: Female

DRUGS (4)
  1. ALBUMIN HUMAN [Suspect]
     Active Substance: ALBUMIN HUMAN
     Indication: Hypoalbuminaemia
     Route: 041
     Dates: start: 20221228, end: 20221228
  2. Gingko biloba Leaves Injection [Concomitant]
     Indication: Product used for unknown indication
     Route: 041
     Dates: start: 20221228, end: 20221228
  3. Inosine Injection [Concomitant]
     Indication: Product used for unknown indication
     Route: 041
     Dates: start: 20221228, end: 20221228
  4. SODIM CHLORIDE [Concomitant]
     Indication: Product used for unknown indication
     Route: 041
     Dates: start: 20221228, end: 20221228

REACTIONS (2)
  - Seizure [Recovering/Resolving]
  - Dyspnoea [Recovering/Resolving]

NARRATIVE: CASE EVENT DATE: 20221228
